FAERS Safety Report 15753035 (Version 1)
Quarter: 2018Q4

REPORT INFORMATION
  Report Type: Report from Study
  Country: US (occurrence: US)
  Receive Date: 20181221
  Receipt Date: 20181221
  Transmission Date: 20190205
  Serious: No
  Sender: FDA-Public Use
  Company Number: PHEH2018US053157

PATIENT
  Age: 83 Year
  Sex: Female

DRUGS (1)
  1. ENTRESTO [Suspect]
     Active Substance: SACUBITRIL\VALSARTAN
     Indication: CARDIAC DISORDER
     Dosage: 97 MG, BID (SACUBITRIL 97 MG/ VALSARTAN 103 MG)
     Route: 048
     Dates: start: 201709, end: 20181212

REACTIONS (4)
  - Lacrimation increased [Unknown]
  - Product use in unapproved indication [Unknown]
  - Rhinorrhoea [Unknown]
  - Cough [Not Recovered/Not Resolved]

NARRATIVE: CASE EVENT DATE: 201709
